FAERS Safety Report 6357893-0 (Version None)
Quarter: 2009Q3

REPORT INFORMATION
  Report Type: 
  Country: None (occurrence: None)
  Receive Date: 20090916
  Receipt Date: 20090507
  Transmission Date: 20100115
  Serious: No
  Sender: FDA-Public Use
  Company Number: US-BAYER-200913958NA

PATIENT
  Age: 26 Year
  Sex: Female
  Weight: 50 kg

DRUGS (1)
  1. MIRENA [Suspect]
     Indication: DRUG USE FOR UNKNOWN INDICATION
     Dosage: CONTINUOUS
     Route: 015
     Dates: start: 20081208

REACTIONS (4)
  - ABDOMINAL PAIN [None]
  - DEVICE SHAPE ALTERATION [None]
  - IUCD COMPLICATION [None]
  - VAGINAL HAEMORRHAGE [None]
